FAERS Safety Report 24784226 (Version 2)
Quarter: 2025Q1

REPORT INFORMATION
  Report Type: Spontaneous
  Country: ES (occurrence: ES)
  Receive Date: 20241227
  Receipt Date: 20250123
  Transmission Date: 20250409
  Serious: Yes (Hospitalization)
  Sender: ELI LILLY AND COMPANY
  Company Number: ES-ELI_LILLY_AND_COMPANY-ES202412013775

PATIENT
  Age: 49 Year
  Sex: Female
  Weight: 53 kg

DRUGS (2)
  1. BARICITINIB [Suspect]
     Active Substance: BARICITINIB
     Indication: Alopecia areata
     Dosage: 4 MG, DAILY
     Route: 048
     Dates: start: 20230130
  2. DEFLAZACORT [Concomitant]
     Active Substance: DEFLAZACORT
     Indication: Product used for unknown indication

REACTIONS (3)
  - Coronary artery dissection [Recovered/Resolved]
  - Angina pectoris [Recovered/Resolved]
  - Myocardial infarction [Recovered/Resolved]
